FAERS Safety Report 21087709 (Version 5)
Quarter: 2022Q3

REPORT INFORMATION
  Report Type: Spontaneous
  Country: US (occurrence: US)
  Receive Date: 20220715
  Receipt Date: 20220805
  Transmission Date: 20221027
  Serious: Yes (Hospitalization)
  Sender: FDA-Public Use
  Company Number: US-ALKERMES INC.-ALK-2022-003423

PATIENT
  Age: 39 Year
  Sex: Male
  Weight: 97.506 kg

DRUGS (2)
  1. ARISTADA [Suspect]
     Active Substance: ARIPIPRAZOLE LAUROXIL
     Indication: Product used for unknown indication
     Dosage: 1064 MILLIGRAM, 45-60 DAYS
     Route: 030
     Dates: start: 20220608
  2. ARISTADA [Suspect]
     Active Substance: ARIPIPRAZOLE LAUROXIL
     Dosage: 1064 MILLIGRAM, Q8WK
     Route: 030
     Dates: start: 2021, end: 2021

REACTIONS (11)
  - Muscle injury [Recovering/Resolving]
  - Fluid retention [Recovering/Resolving]
  - Fall [Recovered/Resolved]
  - Therapeutic response decreased [Not Recovered/Not Resolved]
  - Restlessness [Unknown]
  - Haematoma [Recovering/Resolving]
  - Peripheral swelling [Unknown]
  - Off label use [Not Recovered/Not Resolved]
  - Mobility decreased [Not Recovered/Not Resolved]
  - Skin ulcer [Not Recovered/Not Resolved]
  - Pruritus [Not Recovered/Not Resolved]

NARRATIVE: CASE EVENT DATE: 20210101
